FAERS Safety Report 9931786 (Version 1)
Quarter: 2014Q1

REPORT INFORMATION
  Report Type: Spontaneous
  Country: US (occurrence: None)
  Receive Date: 20140226
  Receipt Date: 20140226
  Transmission Date: 20141002
  Serious: Yes (Other)
  Sender: FDA-Public Use
  Company Number: US-2014-10307

PATIENT
  Sex: Female

DRUGS (5)
  1. OPC-41061 (TOLVAPTAN) TABLET [Suspect]
     Indication: CONGENITAL CYSTIC KIDNEY DISEASE
     Route: 048
     Dates: start: 20110604, end: 20140210
  2. VITAMIN D (ERGOCALCIFEROL) [Concomitant]
  3. ALLEGRA [Concomitant]
  4. ORTHO TRI-CYCLEN (ETHINYLESTRADIOL, NORGESTIMATE) [Concomitant]
  5. ENALAPRIL MALEATE (ENALAPRIL MALEATE) [Concomitant]

REACTIONS (4)
  - Vertigo [None]
  - Nausea [None]
  - Vomiting [None]
  - Upper respiratory tract infection [None]
